FAERS Safety Report 7576696-2 (Version None)
Quarter: 2011Q2

REPORT INFORMATION
  Report Type: 
  Country: None (occurrence: None)
  Receive Date: 20110628
  Receipt Date: 20110617
  Transmission Date: 20111010
  Serious: Yes (Other)
  Sender: FDA-Public Use
  Company Number: DE-ASTELLAS-2011EU004052

PATIENT
  Age: 60 Year
  Sex: Female

DRUGS (3)
  1. TACROLIMUS [Suspect]
     Indication: RENAL TRANSPLANT
     Dosage: UNK
     Route: 065
  2. MYCOPHENOLATE MEFETIL [Concomitant]
     Dosage: 1.5 G, UNKNOWN/D
     Route: 065
  3. PROGRAF [Suspect]
     Indication: RENAL TRANSPLANT
     Dosage: 3.5 MG, UNKNOWN/D
     Route: 065

REACTIONS (2)
  - PANIC ATTACK [None]
  - BLOOD PRESSURE ABNORMAL [None]
